FAERS Safety Report 20000617 (Version 1)
Quarter: 2021Q4

REPORT INFORMATION
  Report Type: Spontaneous
  Country: US (occurrence: US)
  Receive Date: 20211026
  Receipt Date: 20211026
  Transmission Date: 20220303
  Serious: Yes (Hospitalization)
  Sender: FDA-Public Use
  Company Number: None

PATIENT
  Age: 73 Year
  Sex: Female

DRUGS (1)
  1. EXEMESTANE [Suspect]
     Active Substance: EXEMESTANE
     Indication: Breast cancer female
     Route: 048
     Dates: start: 201903

REACTIONS (3)
  - Constipation [None]
  - Diverticulitis [None]
  - Gastric polyps [None]

NARRATIVE: CASE EVENT DATE: 20211019
